FAERS Safety Report 4486447-6 (Version None)
Quarter: 2004Q4

REPORT INFORMATION
  Report Type: 
  Country: None (occurrence: None)
  Receive Date: 20041027
  Receipt Date: 20041004
  Transmission Date: 20050328
  Serious: Yes (Life-Threatening, Hospitalization)
  Sender: FDA-Public Use
  Company Number: PHBS2004JP13286

PATIENT
  Age: 78 Year
  Sex: Male
  Weight: 63 kg

DRUGS (5)
  1. VOLTAREN [Suspect]
     Indication: PYELONEPHRITIS ACUTE
     Dosage: 50 MG/DAY
     Route: 054
     Dates: start: 20040702, end: 20040702
  2. PL GRAN. [Concomitant]
     Route: 048
     Dates: end: 20040702
  3. CLARITH [Concomitant]
     Route: 048
     Dates: end: 20040702
  4. WYTENS [Concomitant]
     Route: 048
     Dates: end: 20040702
  5. CONTOL [Concomitant]
     Route: 048
     Dates: end: 20040702

REACTIONS (8)
  - BLISTER [None]
  - EXTRADURAL ABSCESS [None]
  - GENERALISED ERYTHEMA [None]
  - MYELITIS [None]
  - NIKOLSKY'S SIGN [None]
  - RASH [None]
  - SKIN ULCER [None]
  - TOXIC EPIDERMAL NECROLYSIS [None]
